FAERS Safety Report 18363381 (Version 1)
Quarter: 2020Q4

REPORT INFORMATION
  Report Type: Spontaneous
  Country: CN (occurrence: US)
  Receive Date: 20201009
  Receipt Date: 20201009
  Transmission Date: 20210114
  Serious: Yes (Other)
  Sender: FDA-Public Use
  Company Number: CN-PANACEA BIOTEC LIMITED-000010

PATIENT
  Age: 4 Year
  Weight: 20 kg

DRUGS (4)
  1. TACROLIMUS. [Suspect]
     Active Substance: TACROLIMUS
     Indication: LUPUS NEPHRITIS
     Route: 065
  2. MYCOPHENOLATE MOFETIL. [Suspect]
     Active Substance: MYCOPHENOLATE MOFETIL
     Indication: LUPUS NEPHRITIS
     Dosage: 0.5 GRAM
     Route: 065
  3. PREDNISONE. [Concomitant]
     Active Substance: PREDNISONE
     Indication: LUPUS NEPHRITIS
     Dosage: 20 MG
     Route: 065
  4. HYDROXYCHLOROQUINE [Concomitant]
     Active Substance: HYDROXYCHLOROQUINE
     Indication: LUPUS NEPHRITIS
     Route: 065

REACTIONS (3)
  - Lupus nephritis [Recovered/Resolved]
  - Drug effective for unapproved indication [Unknown]
  - Disease recurrence [Recovered/Resolved]
